FAERS Safety Report 25477469 (Version 2)
Quarter: 2025Q2

REPORT INFORMATION
  Report Type: Spontaneous
  Country: RO (occurrence: RO)
  Receive Date: 20250625
  Receipt Date: 20250630
  Transmission Date: 20250717
  Serious: Yes (Death, Other)
  Sender: JOHNSON AND JOHNSON
  Company Number: RO-JNJFOC-20250623937

PATIENT
  Age: 70 Year
  Sex: Female

DRUGS (4)
  1. TECVAYLI [Suspect]
     Active Substance: TECLISTAMAB-CQYV
     Indication: Plasma cell myeloma refractory
     Route: 058
     Dates: start: 20250505
  2. ENTRESTO [Concomitant]
     Active Substance: SACUBITRIL\VALSARTAN
     Indication: Cardiac failure
  3. DAPAGLIFLOZIN [Concomitant]
     Active Substance: DAPAGLIFLOZIN
     Indication: Cardiac failure
  4. DIAZEPAM [Concomitant]
     Active Substance: DIAZEPAM
     Indication: Insomnia

REACTIONS (7)
  - Death [Fatal]
  - Immune effector cell-associated neurotoxicity syndrome [Unknown]
  - Constipation [Unknown]
  - Diarrhoea [Unknown]
  - Chills [Unknown]
  - Muscular weakness [Unknown]
  - Haemorrhage [Unknown]

NARRATIVE: CASE EVENT DATE: 20250610
